FAERS Safety Report 6732088-7 (Version None)
Quarter: 2010Q2

REPORT INFORMATION
  Report Type: 
  Country: None (occurrence: None)
  Receive Date: 20100519
  Receipt Date: 20100514
  Transmission Date: 20101027
  Serious: Yes (Hospitalization)
  Sender: FDA-Public Use
  Company Number: US-BRISTOL-MYERS SQUIBB COMPANY-15107493

PATIENT
  Age: 79 Year
  Sex: Male
  Weight: 83 kg

DRUGS (6)
  1. ERBITUX [Suspect]
     Indication: OESOPHAGEAL CARCINOMA
     Dosage: LAST DOSE ON 11MAY2010.400MG\M2IVDAY1ONLY,250MG/M2DAY8,15,22,29,36
     Route: 042
     Dates: start: 20100427
  2. CISPLATIN [Suspect]
     Indication: OESOPHAGEAL CARCINOMA
     Dosage: DRUG INTERRUPTED ON 11MAY2010.LAST DOSE ON 04MAY2010.25MG/M21,8,15,22,29,36
     Dates: start: 20100427
  3. TAXOL [Suspect]
     Indication: OESOPHAGEAL CARCINOMA
     Dosage: DRUG INTERRUPTED ON 11MAY2010.LAST DOSE ON 04MAY2010.50MG/M21,8,15,22,29,36
     Dates: start: 20100427
  4. RADIATION THERAPY [Suspect]
     Indication: OESOPHAGEAL CARCINOMA
     Dosage: RADIATION DAYS1-5,8-12,15-19,22-26,29-33,36-38.INTERRUPTED ON 11-MAY-2010
  5. COUMADIN [Suspect]
     Indication: COAGULOPATHY
     Dosage: DRUG INTERRUPTED ON 11MAY2010.1-5,8-12,15-19,22-26,29-33,36-38
  6. PLAVIX [Suspect]
     Indication: COAGULOPATHY

REACTIONS (2)
  - NEUTROPHIL COUNT DECREASED [None]
  - RECTAL HAEMORRHAGE [None]
